FAERS Safety Report 9378604 (Version 1)
Quarter: 2013Q2

REPORT INFORMATION
  Report Type: Spontaneous
  Country: CA (occurrence: None)
  Receive Date: 20130626
  Receipt Date: 20130626
  Transmission Date: 20140414
  Serious: Yes (Hospitalization)
  Sender: FDA-Public Use
  Company Number: ACET20130022

PATIENT
  Age: 18 Year
  Sex: Female

DRUGS (1)
  1. Q-PAP EXTRA STRENGTH [Suspect]

REACTIONS (3)
  - Overdose [None]
  - Metabolic acidosis [None]
  - Mental status changes [None]
